FAERS Safety Report 19666310 (Version 1)
Quarter: 2021Q3

REPORT INFORMATION
  Report Type: Report from Study
  Country: DE (occurrence: DE)
  Receive Date: 20210806
  Receipt Date: 20210806
  Transmission Date: 20211014
  Serious: Yes (Other)
  Sender: FDA-Public Use
  Company Number: DE-BAUSCH-BL-2021-009928

PATIENT
  Sex: Male
  Weight: 85 kg

DRUGS (1)
  1. KYNTHEUM (BRODALUMAB) [Suspect]
     Active Substance: BRODALUMAB
     Indication: PSORIASIS
     Dosage: FIRST INJECTION IN THE 10TH WEEK OF WIFE^S PREGNANCY THEN BI?WEEKLY
     Route: 058

REACTIONS (1)
  - Paternal exposure during pregnancy [Unknown]
